FAERS Safety Report 18277354 (Version 1)
Quarter: 2020Q3

REPORT INFORMATION
  Report Type: Report from Study
  Country: AU (occurrence: AU)
  Receive Date: 20200917
  Receipt Date: 20200917
  Transmission Date: 20201103
  Serious: Yes (Other)
  Sender: FDA-Public Use
  Company Number: AU-REGENERON PHARMACEUTICALS, INC.-2020-76387

PATIENT

DRUGS (1)
  1. EYLEA [Suspect]
     Active Substance: AFLIBERCEPT
     Indication: DIABETIC RETINAL OEDEMA
     Dosage: EVERY 2?3 WEEKS
     Route: 031
     Dates: start: 2019

REACTIONS (2)
  - Visual impairment [Unknown]
  - Hallucination, visual [Not Recovered/Not Resolved]
